FAERS Safety Report 19473496 (Version 1)
Quarter: 2021Q2

REPORT INFORMATION
  Report Type: Spontaneous
  Country: FR (occurrence: FR)
  Receive Date: 20210629
  Receipt Date: 20210629
  Transmission Date: 20210717
  Serious: Yes (Other)
  Sender: FDA-Public Use
  Company Number: FR-B.I. PHARMACEUTICALS,INC./RIDGEFIELD-2021-BI-110652

PATIENT
  Age: 41 Year
  Sex: Female

DRUGS (5)
  1. PEGYLATED INTERFERON ALFA?2A [Concomitant]
     Active Substance: PEGINTERFERON ALFA-2A
     Indication: HEPATITIS C
     Dosage: UNK
     Route: 065
  2. TENOFOVIR [Suspect]
     Active Substance: TENOFOVIR
     Indication: HIV INFECTION
     Dosage: UNK
     Route: 065
     Dates: start: 200111
  3. NEVIRAPINE. [Suspect]
     Active Substance: NEVIRAPINE
     Indication: HIV INFECTION
     Dosage: UNK
     Route: 065
  4. RIBAVIRIN. [Suspect]
     Active Substance: RIBAVIRIN
     Indication: HEPATITIS C
     Dosage: UNK
     Route: 065
  5. ABACAVIR. [Suspect]
     Active Substance: ABACAVIR
     Indication: HIV INFECTION
     Dosage: UNK
     Route: 065

REACTIONS (10)
  - Renal tubular dysfunction [Recovering/Resolving]
  - Myalgia [Recovering/Resolving]
  - Nephropathy toxic [Recovering/Resolving]
  - Hypophosphataemia [Recovering/Resolving]
  - Haemoglobinaemia [Recovering/Resolving]
  - Renal tubular injury [Recovering/Resolving]
  - Anaemia [Recovering/Resolving]
  - Proteinuria [Recovering/Resolving]
  - Glycosuria [Recovering/Resolving]
  - Paraesthesia [Recovering/Resolving]

NARRATIVE: CASE EVENT DATE: 2003
